FAERS Safety Report 8866462 (Version 2)
Quarter: 2013Q1

REPORT INFORMATION
  Report Type: Spontaneous
  Country: BR (occurrence: BR)
  Receive Date: 20121025
  Receipt Date: 20130318
  Transmission Date: 20140127
  Serious: Yes (Hospitalization, Other)
  Sender: FDA-Public Use
  Company Number: BR-ABBOTT-12P-020-0999476-00

PATIENT
  Sex: Female
  Weight: 80 kg

DRUGS (9)
  1. SYNTHROID [Suspect]
     Indication: THYROIDECTOMY
     Dosage: IN FASTING
     Route: 048
  2. SYNTHROID [Suspect]
     Dosage: IN FASTING
     Route: 048
  3. SYNTHROID [Suspect]
     Dosage: IN FASTING
     Route: 048
  4. RITMONORM (PROPAFENONE 300MG) [Suspect]
     Indication: ARRHYTHMIA
     Dosage: IN FASTING
     Route: 048
  5. RITMONORM (PROPAFENONE 300MG) [Suspect]
     Route: 048
     Dates: start: 201209
  6. ANCORON [Suspect]
     Indication: PRODUCT USED FOR UNKNOWN INDICATION
  7. LEXOTAN [Concomitant]
     Indication: SLEEP DISORDER THERAPY
     Dosage: AT BEDTIME
     Route: 048
  8. NOCTIDEN [Concomitant]
     Indication: PRODUCT USED FOR UNKNOWN INDICATION
     Dosage: 1 HOUR AFTER TAKING LEXOTAN, AS NEEDED IN LEXOTAN LACK OF EFFECT
     Route: 048
  9. VYTORIN [Concomitant]
     Indication: BLOOD CHOLESTEROL INCREASED
     Dosage: 10 MG + 20 MG
     Route: 048

REACTIONS (11)
  - Spinal fracture [Unknown]
  - Chest pain [Unknown]
  - Syncope [Recovered/Resolved]
  - Device failure [Unknown]
  - Metastases to spine [Unknown]
  - Blood pressure fluctuation [Recovering/Resolving]
  - Heart rate increased [Recovered/Resolved]
  - Osteoarthritis [Not Recovered/Not Resolved]
  - Dizziness [Recovered/Resolved]
  - Fall [Unknown]
  - Arrhythmia [Recovered/Resolved]
